FAERS Safety Report 14580735 (Version 2)
Quarter: 2018Q1

REPORT INFORMATION
  Report Type: Report from Study
  Country: GB (occurrence: GB)
  Receive Date: 20180228
  Receipt Date: 20180309
  Transmission Date: 20180509
  Serious: Yes (Other)
  Sender: FDA-Public Use
  Company Number: GB-TEVA-2018-GB-860520

PATIENT
  Age: 42 Year
  Sex: Female

DRUGS (2)
  1. COPAXONE [Suspect]
     Active Substance: GLATIRAMER ACETATE
     Indication: MULTIPLE SCLEROSIS
     Route: 058
     Dates: start: 20180122
  2. VITAMIN D [Concomitant]
     Active Substance: CHOLECALCIFEROL
     Dosage: DOSAGE UNKNOWN
     Route: 065

REACTIONS (17)
  - Loss of consciousness [Recovering/Resolving]
  - Abdominal discomfort [Recovering/Resolving]
  - Influenza like illness [Recovered/Resolved with Sequelae]
  - Oropharyngeal pain [Recovering/Resolving]
  - Headache [Recovering/Resolving]
  - Dysstasia [Recovering/Resolving]
  - Dizziness [Recovering/Resolving]
  - Pain [Recovering/Resolving]
  - Tremor [Recovering/Resolving]
  - Gait disturbance [Recovering/Resolving]
  - Hypersomnia [Recovering/Resolving]
  - Injection site erythema [Recovering/Resolving]
  - Injection site bruising [Recovering/Resolving]
  - Hypoaesthesia [Recovering/Resolving]
  - Syncope [Recovering/Resolving]
  - Peripheral coldness [Recovering/Resolving]
  - Fall [Recovering/Resolving]

NARRATIVE: CASE EVENT DATE: 20180212
